FAERS Safety Report 6420257-5 (Version None)
Quarter: 2009Q4

REPORT INFORMATION
  Report Type: 
  Country: None (occurrence: None)
  Receive Date: 20091029
  Receipt Date: 20091021
  Transmission Date: 20100525
  Serious: Yes (Hospitalization, Other)
  Sender: FDA-Public Use
  Company Number: PHHY2009FR46451

PATIENT
  Sex: Male

DRUGS (2)
  1. CERTICAN [Suspect]
     Indication: HEART TRANSPLANT
     Dosage: 0.5 MG, BID
  2. CELLCEPT [Concomitant]
     Dosage: 500 MG, TID

REACTIONS (5)
  - CYANOSIS [None]
  - DYSPNOEA [None]
  - LUNG INFECTION [None]
  - RESTRICTIVE PULMONARY DISEASE [None]
  - VITAL CAPACITY DECREASED [None]
